FAERS Safety Report 6347396-1 (Version None)
Quarter: 2009Q3

REPORT INFORMATION
  Report Type: 
  Country: None (occurrence: None)
  Receive Date: 20090910
  Receipt Date: 20090902
  Transmission Date: 20100115
  Serious: Yes (Other)
  Sender: FDA-Public Use
  Company Number: US-ASTRAZENECA-2006UW01696

PATIENT
  Age: 59 Year
  Sex: Female
  Weight: 77.1 kg

DRUGS (11)
  1. ARIMIDEX [Suspect]
     Indication: MASTECTOMY
     Route: 048
     Dates: start: 20051201
  2. ARIMIDEX [Suspect]
     Indication: CHEMOTHERAPY
     Route: 048
     Dates: start: 20051201
  3. ARIMIDEX [Suspect]
     Indication: BREAST CANCER
     Route: 048
     Dates: start: 20051201
  4. ARIMIDEX [Suspect]
     Indication: HORMONE REPLACEMENT THERAPY
     Route: 048
     Dates: start: 20051201
  5. SYNTHROID [Concomitant]
     Indication: HYPOTHYROIDISM
  6. ACTONEL [Concomitant]
  7. OSCAL [Concomitant]
  8. ULTRA [Concomitant]
  9. DOXEPIN HCL [Concomitant]
  10. BONIVA [Concomitant]
  11. ARMOUR THYROID [Concomitant]
     Indication: HYPOTHYROIDISM

REACTIONS (9)
  - BLEPHARITIS [None]
  - DEPRESSION [None]
  - DRY EYE [None]
  - HOT FLUSH [None]
  - MOOD SWINGS [None]
  - MYALGIA [None]
  - PUNCTATE KERATITIS [None]
  - ULCERATIVE KERATITIS [None]
  - WEIGHT INCREASED [None]
